FAERS Safety Report 16419880 (Version 5)
Quarter: 2019Q3

REPORT INFORMATION
  Report Type: Report from Study
  Country: ES (occurrence: ES)
  Receive Date: 20190612
  Receipt Date: 20190917
  Transmission Date: 20191004
  Serious: Yes (Hospitalization)
  Sender: FDA-Public Use
  Company Number: ES-CELGENEUS-ESP-20180810161

PATIENT
  Age: 76 Year
  Sex: Male
  Weight: 53.5 kg

DRUGS (27)
  1. CARBOPLATIN. [Suspect]
     Active Substance: CARBOPLATIN
     Dosage: 480 MILLIGRAM
     Route: 041
     Dates: end: 20160323
  2. GLYCOPYRRONIUM BROMIDE [Concomitant]
     Active Substance: GLYCOPYRRONIUM
     Indication: INFECTION
     Route: 065
     Dates: start: 20180827, end: 20180831
  3. VILANTEROL [Concomitant]
     Active Substance: VILANTEROL TRIFENATATE
     Indication: CHRONIC OBSTRUCTIVE PULMONARY DISEASE
     Route: 065
     Dates: start: 20180528, end: 20180730
  4. LOPERAMIDE [Concomitant]
     Active Substance: LOPERAMIDE
     Indication: DIARRHOEA
     Route: 065
     Dates: start: 20190507, end: 20190522
  5. CHOLESTYRAMINE. [Concomitant]
     Active Substance: CHOLESTYRAMINE
     Indication: PROPHYLAXIS
     Route: 065
     Dates: start: 20190520, end: 20190521
  6. ATEZOLIZUMAB. [Suspect]
     Active Substance: ATEZOLIZUMAB
     Dosage: 1200 MILLIGRAM
     Route: 041
     Dates: end: 20190517
  7. IPRATROPIO BROMURO [Concomitant]
     Active Substance: IPRATROPIUM BROMIDE
     Indication: UPPER RESPIRATORY TRACT INFECTION
     Route: 065
     Dates: start: 20180405
  8. RANITIDINE. [Concomitant]
     Active Substance: RANITIDINE
     Indication: GASTRITIS PROPHYLAXIS
     Route: 065
     Dates: start: 20180813, end: 20180813
  9. INSULIN [Concomitant]
     Active Substance: INSULIN NOS
     Indication: TYPE 2 DIABETES MELLITUS
     Route: 065
     Dates: start: 20190518, end: 20190522
  10. IPRATROPIO BROMURO [Concomitant]
     Active Substance: IPRATROPIUM BROMIDE
     Indication: DYSPNOEA
  11. TEOFILIN [Concomitant]
     Active Substance: THEOPHYLLINE ANHYDROUS
     Indication: CHRONIC OBSTRUCTIVE PULMONARY DISEASE
     Route: 065
     Dates: start: 20180528, end: 20180730
  12. POTASION [Concomitant]
     Active Substance: POTASSIUM CHLORIDE
     Indication: HYPOKALAEMIA
     Route: 065
     Dates: start: 20190506
  13. SPIOLTO RESPIMAT [Concomitant]
     Active Substance: OLODATEROL HYDROCHLORIDE\TIOTROPIUM BROMIDE MONOHYDRATE
     Indication: OXYGEN CONSUMPTION
     Route: 065
     Dates: start: 20180827
  14. ABRAXANE [Suspect]
     Active Substance: PACLITAXEL
     Indication: NON-SMALL CELL LUNG CANCER
     Dosage: 170 MILLIGRAM
     Route: 041
     Dates: start: 20160113, end: 20160406
  15. ATEZOLIZUMAB. [Suspect]
     Active Substance: ATEZOLIZUMAB
     Dosage: 1200 MILLIGRAM
     Route: 041
     Dates: end: 20190321
  16. OMEPRAZOL [Concomitant]
     Active Substance: OMEPRAZOLE
     Route: 065
     Dates: start: 20190328
  17. CEFEPIME [Concomitant]
     Active Substance: CEFEPIME HYDROCHLORIDE
     Indication: OXYGEN CONSUMPTION INCREASED
     Route: 065
     Dates: start: 20180822, end: 20180826
  18. CARBOPLATIN. [Suspect]
     Active Substance: CARBOPLATIN
     Indication: NON-SMALL CELL LUNG CANCER
     Dosage: AUC 6 MG/ML/MIN
     Route: 041
     Dates: start: 20160113
  19. COMBIPRASAL [Concomitant]
     Active Substance: ALBUTEROL SULFATE\IPRATROPIUM BROMIDE
     Indication: OXYGEN CONSUMPTION INCREASED
     Route: 065
     Dates: start: 20180813, end: 20180813
  20. GLYCOPYRRONIUM BROMIDE [Concomitant]
     Active Substance: GLYCOPYRRONIUM
     Indication: OXYGEN CONSUMPTION INCREASED
     Route: 065
     Dates: start: 20180813, end: 20180819
  21. ATEZOLIZUMAB. [Suspect]
     Active Substance: ATEZOLIZUMAB
     Indication: NON-SMALL CELL LUNG CANCER
     Dosage: 1200 MILLIGRAM
     Route: 041
     Dates: start: 20160113
  22. SALBUTAMOL [Concomitant]
     Active Substance: ALBUTEROL
     Indication: CHRONIC OBSTRUCTIVE PULMONARY DISEASE
     Route: 065
     Dates: start: 20180527
  23. INDACATEROL MALEATE [Concomitant]
     Active Substance: INDACATEROL MALEATE
     Indication: CHRONIC OBSTRUCTIVE PULMONARY DISEASE
     Route: 065
     Dates: start: 201505
  24. SITAGLIPTIN [Concomitant]
     Active Substance: SITAGLIPTIN
     Indication: TYPE 2 DIABETES MELLITUS
     Route: 065
     Dates: start: 20190523
  25. OMEPRAZOL [Concomitant]
     Active Substance: OMEPRAZOLE
     Indication: GASTRITIS PROPHYLAXIS
     Route: 065
     Dates: start: 20180827, end: 20180906
  26. OMEPRAZOL [Concomitant]
     Active Substance: OMEPRAZOLE
     Route: 065
     Dates: start: 20190615, end: 20190627
  27. GLYCOPYRRONIUM BROMIDE [Concomitant]
     Active Substance: GLYCOPYRRONIUM
     Indication: CHRONIC OBSTRUCTIVE PULMONARY DISEASE
     Route: 065
     Dates: start: 201805

REACTIONS (4)
  - Chronic obstructive pulmonary disease [Recovered/Resolved]
  - Chronic obstructive pulmonary disease [Recovered/Resolved]
  - Chronic obstructive pulmonary disease [Recovered/Resolved]
  - Pneumonia [Recovering/Resolving]

NARRATIVE: CASE EVENT DATE: 20180818
